FAERS Safety Report 24691422 (Version 1)
Quarter: 2024Q4

REPORT INFORMATION
  Report Type: Spontaneous
  Country: US (occurrence: US)
  Receive Date: 20241203
  Receipt Date: 20241203
  Transmission Date: 20250114
  Serious: No
  Sender: PFIZER
  Company Number: US-PFIZER INC-PV202400144707

PATIENT
  Age: 66 Year
  Sex: Female
  Weight: 67.392 kg

DRUGS (1)
  1. LORBRENA [Suspect]
     Active Substance: LORLATINIB
     Indication: Lung neoplasm malignant
     Dosage: 100 MG TAB TAKE 1 TAB BY MOUTH DAILY
     Route: 048

REACTIONS (1)
  - Neoplasm progression [Unknown]
